FAERS Safety Report 9206397 (Version 1)
Quarter: 2013Q2

REPORT INFORMATION
  Report Type: Spontaneous
  Country: US (occurrence: None)
  Receive Date: 20130401
  Receipt Date: 20130401
  Transmission Date: 20140414
  Serious: Yes (Hospitalization)
  Sender: FDA-Public Use
  Company Number: 2013030079

PATIENT
  Age: 21 Year
  Sex: Female

DRUGS (4)
  1. ZOLPIDEM (ZOLPIDEM) [Suspect]
     Indication: INITIAL INSOMNIA
     Route: 048
  2. ZOLPIDEM (ZOLPIDEM) [Suspect]
     Indication: TERMINAL INSOMNIA
     Route: 048
  3. ZOLPIDEM (ZOLPIDEM) [Suspect]
     Indication: SUICIDE ATTEMPT
     Route: 048
  4. VENLAFAXINE (VENLAFAXINE) [Concomitant]

REACTIONS (6)
  - Treatment noncompliance [None]
  - Memory impairment [None]
  - Intentional self-injury [None]
  - Feeling guilty [None]
  - Intentional overdose [None]
  - Suicide attempt [None]
